FAERS Safety Report 11915405 (Version 1)
Quarter: 2016Q1

REPORT INFORMATION
  Report Type: Spontaneous
  Country: US (occurrence: US)
  Receive Date: 20160114
  Receipt Date: 20160114
  Transmission Date: 20160526
  Serious: No
  Sender: FDA-Public Use
  Company Number: US-TEVA-593333USA

PATIENT
  Sex: Female

DRUGS (1)
  1. METHOTREXATE [Suspect]
     Active Substance: METHOTREXATE
     Dosage: 50 MG/2 ML
     Route: 058

REACTIONS (2)
  - Drug ineffective [Recovered/Resolved]
  - Incorrect product storage [Unknown]
